FAERS Safety Report 24834837 (Version 1)
Quarter: 2025Q1

REPORT INFORMATION
  Report Type: Spontaneous
  Country: US (occurrence: None)
  Receive Date: 20250110
  Receipt Date: 20250110
  Transmission Date: 20250408
  Serious: Yes (Other)
  Sender: FDA-CTU
  Company Number: None

PATIENT
  Age: 33 Year
  Sex: Female
  Weight: 68.4 kg

DRUGS (3)
  1. OCTAGAM IMMUNE GLOBULIN (HUMAN) [Suspect]
     Active Substance: HUMAN IMMUNOGLOBULIN G
     Indication: Dermatomyositis
     Dates: start: 20220328
  2. Patient Refused [Concomitant]
  3. AZITHROMYCIN [Suspect]
     Active Substance: AZITHROMYCIN

REACTIONS (7)
  - Infusion related reaction [None]
  - Headache [None]
  - Chills [None]
  - Tremor [None]
  - Chest discomfort [None]
  - Pallor [None]
  - Feeling cold [None]

NARRATIVE: CASE EVENT DATE: 20250106
